FAERS Safety Report 4738146-0 (Version None)
Quarter: 2005Q3

REPORT INFORMATION
  Report Type: 
  Country: None (occurrence: None)
  Receive Date: 20050808
  Receipt Date: 20050808
  Transmission Date: 20060218
  Serious: Yes (Hospitalization)
  Sender: FDA-Public Use
  Company Number: None

PATIENT
  Age: 65 Year
  Sex: Male
  Weight: 66.6788 kg

DRUGS (6)
  1. IRINOTECAN (CPT 11) [Suspect]
     Indication: COLON CANCER METASTATIC
     Dosage: 110 MG/M2
     Dates: start: 20050711
  2. IRINOTECAN (CPT 11) [Suspect]
     Indication: COLON CANCER METASTATIC
     Dosage: 110 MG/M2
     Dates: start: 20050718
  3. FUDR [Suspect]
     Dosage: 120 MG/KG
     Dates: start: 20050711
  4. FUDR [Suspect]
     Dosage: 120 MG/KG
     Dates: start: 20050718
  5. LEUCOVORIN [Suspect]
     Dosage: 300 MG /M2
     Dates: start: 20050711
  6. LEUCOVORIN [Suspect]
     Dosage: 300 MG /M2
     Dates: start: 20050718

REACTIONS (16)
  - ACUTE RESPIRATORY DISTRESS SYNDROME [None]
  - ASPARTATE AMINOTRANSFERASE INCREASED [None]
  - ASTHENIA [None]
  - BLOOD CHLORIDE DECREASED [None]
  - BLOOD POTASSIUM DECREASED [None]
  - BLOOD SODIUM DECREASED [None]
  - BLOOD UREA INCREASED [None]
  - CHILLS [None]
  - DYSPHONIA [None]
  - HAEMATOCRIT DECREASED [None]
  - HAEMOGLOBIN DECREASED [None]
  - MUCOSAL INFLAMMATION [None]
  - NEUTROPENIA [None]
  - STOMATITIS [None]
  - THROMBOCYTOPENIA [None]
  - WHITE BLOOD CELL COUNT DECREASED [None]
